FAERS Safety Report 13024880 (Version 6)
Quarter: 2017Q4

REPORT INFORMATION
  Report Type: Spontaneous
  Country: GB (occurrence: GB)
  Receive Date: 20161213
  Receipt Date: 20171214
  Transmission Date: 20180320
  Serious: Yes (Hospitalization, Other)
  Sender: FDA-Public Use
  Company Number: GB-BAUSCH-BL-2016-030900

PATIENT
  Age: 79 Year
  Sex: Female
  Weight: 76 kg

DRUGS (80)
  1. VELCADE [Suspect]
     Active Substance: BORTEZOMIB
     Dosage: LYOPHILIZED POWDER, D 1, 4, 8, 11, 22, 25, 29 AND 32; CYCLICAL
     Route: 058
     Dates: start: 20160223
  2. PREDNISONE. [Suspect]
     Active Substance: PREDNISONE
     Route: 048
     Dates: start: 20160114, end: 20160116
  3. CO-DYDRAMOL [Concomitant]
     Active Substance: ACETAMINOPHEN\DIHYDROCODEINE
     Indication: ARTHRALGIA
     Dosage: (4)
     Route: 048
     Dates: start: 2015
  4. BENDROFLUMETHIAZIDE [Concomitant]
     Active Substance: BENDROFLUMETHIAZIDE
     Route: 048
  5. DALTEPARIN [Concomitant]
     Active Substance: DALTEPARIN
     Indication: THROMBOSIS PROPHYLAXIS
     Dosage: DOSAGE FORM: SOLUTION
     Route: 058
     Dates: start: 20160101, end: 20160104
  6. DIHYDROCODEINE [Concomitant]
     Active Substance: DIHYDROCODEINE
     Indication: ARTHRALGIA
     Dosage: (4)
     Route: 048
     Dates: start: 20150225
  7. PARACETAMOL [Concomitant]
     Active Substance: ACETAMINOPHEN
     Route: 048
  8. SEPTRIN [Concomitant]
     Active Substance: SULFAMETHOXAZOLE\TRIMETHOPRIM
     Indication: URINARY TRACT INFECTION
  9. TAZOCIN [Concomitant]
     Active Substance: PIPERACILLIN SODIUM\TAZOBACTAM SODIUM
     Indication: INFECTION
  10. VELCADE [Suspect]
     Active Substance: BORTEZOMIB
     Dosage: 1 CYCLICAL
     Route: 058
     Dates: start: 20160119
  11. VELCADE [Suspect]
     Active Substance: BORTEZOMIB
     Dosage: 1 CYCLICAL
     Route: 058
     Dates: start: 20160405, end: 20161129
  12. DARATUMUMAB [Suspect]
     Active Substance: DARATUMUMAB
     Dosage: DOSAGE FORM: UNSPECIFIED, CYCLICAL
     Route: 042
  13. SEPTRIN [Suspect]
     Active Substance: SULFAMETHOXAZOLE\TRIMETHOPRIM
     Indication: URINARY TRACT INFECTION
     Route: 048
     Dates: start: 201602
  14. CO-AMOXICLAV [Concomitant]
     Active Substance: AMOXICILLIN\CLAVULANIC ACID
     Indication: URINARY TRACT INFECTION
     Dosage: DOSAGE FORM: SOLUTION
     Route: 042
  15. LACTULOSE. [Concomitant]
     Active Substance: LACTULOSE
     Indication: CONSTIPATION
     Route: 048
     Dates: start: 20150223
  16. LACTULOSE. [Concomitant]
     Active Substance: LACTULOSE
     Indication: CONSTIPATION PROPHYLAXIS
     Dosage: (2)
     Route: 048
     Dates: start: 20150225
  17. PARACETAMOL [Concomitant]
     Active Substance: ACETAMINOPHEN
     Indication: PNEUMONIA
     Route: 048
     Dates: start: 2005, end: 20160101
  18. PERINDOPRIL [Concomitant]
     Active Substance: PERINDOPRIL
     Indication: HYPERTENSION
     Route: 048
     Dates: end: 20160108
  19. TAZOCIN [Concomitant]
     Active Substance: PIPERACILLIN SODIUM\TAZOBACTAM SODIUM
     Indication: PNEUMONIA
     Dosage: DOSAGE FORM: SOLUTION
     Route: 042
     Dates: start: 20160316, end: 20160316
  20. CLARITHROMYCIN. [Concomitant]
     Active Substance: CLARITHROMYCIN
     Indication: PNEUMONIA
     Route: 048
     Dates: start: 20160102
  21. PIRITON [Concomitant]
     Active Substance: CHLORPHENIRAMINE MALEATE
     Indication: EYE PRURITUS
     Route: 048
  22. DEXAMETHASONE. [Suspect]
     Active Substance: DEXAMETHASONE
     Indication: PLASMA CELL MYELOMA
     Route: 048
     Dates: start: 20151201, end: 20151201
  23. VELCADE [Suspect]
     Active Substance: BORTEZOMIB
     Dosage: 1 CYCLICAL
     Route: 058
     Dates: start: 20160209
  24. VELCADE [Suspect]
     Active Substance: BORTEZOMIB
     Dosage: 1 CYCLICAL
     Route: 058
     Dates: start: 20160301
  25. VELCADE [Suspect]
     Active Substance: BORTEZOMIB
     Dosage: LYOPHILIZED POWDER, D 1, 4, 8, 11, 22, 25, 29 AND 32 ; CYCLICAL
     Route: 058
     Dates: start: 20160202, end: 20161129
  26. SEPTRIN [Suspect]
     Active Substance: SULFAMETHOXAZOLE\TRIMETHOPRIM
     Indication: INFECTION PROPHYLAXIS
  27. MELPHALAN. [Concomitant]
     Active Substance: MELPHALAN
     Dosage: DOSAGE FORM: UNSPECIFIED
     Route: 048
     Dates: start: 20160113, end: 20160116
  28. ACICLOVIR [Concomitant]
     Active Substance: ACYCLOVIR
     Indication: ANTIVIRAL PROPHYLAXIS
     Route: 048
  29. AMLODIPINE [Concomitant]
     Active Substance: AMLODIPINE BESYLATE
  30. SODIUM CHLORIDE. [Concomitant]
     Active Substance: SODIUM CHLORIDE
     Indication: SEPSIS
     Dosage: DOSAGE FORM: SOLUTION
     Route: 042
     Dates: start: 20160101, end: 20160102
  31. TAZOCIN [Concomitant]
     Active Substance: PIPERACILLIN SODIUM\TAZOBACTAM SODIUM
     Indication: SEPSIS
     Route: 042
     Dates: start: 20160307, end: 20160307
  32. DEXAMETHASONE. [Suspect]
     Active Substance: DEXAMETHASONE
     Dosage: DOSAGE FORM: UNSPECIFIED, DAY 1, 4, 8, 11, 22, 25, 29 AND 32
     Route: 065
  33. VELCADE [Suspect]
     Active Substance: BORTEZOMIB
     Dosage: DOSAGE FORM: LYOPHILIZED POWDER (); CYCLICAL
     Route: 058
     Dates: start: 20151225
  34. DARATUMUMAB [Suspect]
     Active Substance: DARATUMUMAB
     Dosage: DOSAGE FORM: UNSPECIFIED, ON DAYS 1, 8, 15, 22, 29, 36; CYCLICAL
     Route: 042
     Dates: start: 20151201, end: 20160101
  35. SEPTRIN [Suspect]
     Active Substance: SULFAMETHOXAZOLE\TRIMETHOPRIM
     Indication: PROPHYLAXIS
     Dosage: DOSAGE FORM: UNSPECIFIED
     Route: 065
  36. AMLODIPINE [Concomitant]
     Active Substance: AMLODIPINE BESYLATE
     Indication: HYPERTENSION
     Route: 048
  37. DIHYDROCODEINE [Concomitant]
     Active Substance: DIHYDROCODEINE
     Dosage: ()
     Route: 048
  38. LANSOPRAZOLE. [Concomitant]
     Active Substance: LANSOPRAZOLE
     Route: 048
  39. PARACETAMOL [Concomitant]
     Active Substance: ACETAMINOPHEN
     Indication: SEPSIS
     Route: 042
     Dates: start: 20170307, end: 20170307
  40. PARACETAMOL [Concomitant]
     Active Substance: ACETAMINOPHEN
     Indication: INFECTION
     Route: 048
  41. PREDNISOLONE. [Concomitant]
     Active Substance: PREDNISOLONE
     Indication: PRODUCT USED FOR UNKNOWN INDICATION
  42. MORPHINE SULPHATE [Concomitant]
     Active Substance: MORPHINE SULFATE
     Indication: ARTHRALGIA
     Dosage: 1 AS NECESSARY
     Route: 048
     Dates: start: 20160316
  43. VELCADE [Suspect]
     Active Substance: BORTEZOMIB
     Dosage: 1 CYCLICAL
     Route: 058
     Dates: start: 20160113
  44. MELPHALAN. [Concomitant]
     Active Substance: MELPHALAN
     Indication: PLASMA CELL MYELOMA
     Dosage: DOSAGE FORM: UNSPECIFIED, D1-4
     Route: 048
     Dates: start: 20151201, end: 20151204
  45. CO-AMOXICLAV [Concomitant]
     Active Substance: AMOXICILLIN\CLAVULANIC ACID
     Indication: INFECTION PROPHYLAXIS
     Dosage: DOSAGE FORM: SOLUTION, 625 (3)
     Route: 048
     Dates: start: 20151228, end: 20151231
  46. CO-AMOXICLAV [Concomitant]
     Active Substance: AMOXICILLIN\CLAVULANIC ACID
     Indication: PNEUMONIA
     Dosage: DOSAGE FORM: SOLUTION
     Route: 042
     Dates: start: 20160102, end: 20160104
  47. ACICLOVIR [Concomitant]
     Active Substance: ACYCLOVIR
     Route: 048
     Dates: start: 20151201
  48. FERROUS FUMARATE [Concomitant]
     Active Substance: FERROUS FUMARATE
     Indication: IRON DEFICIENCY
     Route: 048
     Dates: start: 2010
  49. SEPTRIN [Concomitant]
     Active Substance: SULFAMETHOXAZOLE\TRIMETHOPRIM
     Indication: INFECTION PROPHYLAXIS
     Route: 048
     Dates: start: 201602
  50. SULFAMETHOXAZOLE AND TRIMETHOPRIM [Concomitant]
     Active Substance: SULFAMETHOXAZOLE\TRIMETHOPRIM
     Indication: PRODUCT USED FOR UNKNOWN INDICATION
     Route: 048
  51. METOCLOPRAMIDE HYDROCHLORIDE. [Concomitant]
     Active Substance: METOCLOPRAMIDE HYDROCHLORIDE
     Indication: PRODUCT USED FOR UNKNOWN INDICATION
     Dosage: DOSAGE FORM: UNSPECIFIED, DOSE INTERVAL OF 8 HOURS ; AS NECESSARY
     Route: 048
     Dates: start: 20160105
  52. MORPHINE SULPHATE [Concomitant]
     Active Substance: MORPHINE SULFATE
     Dosage: 1 AS NECESSARY
     Route: 048
     Dates: start: 20160308
  53. CLARITHROMYCIN. [Concomitant]
     Active Substance: CLARITHROMYCIN
     Indication: INFECTION
  54. VELCADE [Suspect]
     Active Substance: BORTEZOMIB
     Dosage: 1 CYCLICAL
     Route: 058
     Dates: start: 20151201, end: 20160119
  55. VELCADE [Suspect]
     Active Substance: BORTEZOMIB
     Dosage: 1 CYCLICAL
     Route: 058
     Dates: start: 20151208
  56. VELCADE [Suspect]
     Active Substance: BORTEZOMIB
     Dosage: 1 CYCLICAL
     Route: 058
     Dates: start: 20151211
  57. DARATUMUMAB [Suspect]
     Active Substance: DARATUMUMAB
     Indication: PLASMA CELL MYELOMA
     Dosage: DOSAGE FORM: UNSPECIFIED, CYCLICAL
     Route: 042
     Dates: start: 20151201, end: 20151229
  58. SEPTRIN [Suspect]
     Active Substance: SULFAMETHOXAZOLE\TRIMETHOPRIM
     Indication: PRODUCT USED FOR UNKNOWN INDICATION
  59. MELPHALAN. [Concomitant]
     Active Substance: MELPHALAN
     Dosage: DOSAGE FORM: UNSPECIFIED
     Route: 048
     Dates: start: 20160223, end: 20160226
  60. ALLOPURINOL. [Concomitant]
     Active Substance: ALLOPURINOL
     Indication: GOUT
     Route: 048
     Dates: start: 20151201
  61. BENDROFLUMETHIAZIDE [Concomitant]
     Active Substance: BENDROFLUMETHIAZIDE
     Indication: HYPERTENSION
     Route: 048
     Dates: start: 201512
  62. LANSOPRAZOLE. [Concomitant]
     Active Substance: LANSOPRAZOLE
     Indication: PROPHYLAXIS AGAINST GASTROINTESTINAL ULCER
     Route: 048
     Dates: start: 2005
  63. SODIUM CHLORIDE. [Concomitant]
     Active Substance: SODIUM CHLORIDE
     Indication: INFECTION
     Route: 042
     Dates: start: 20160308, end: 20160308
  64. SODIUM CHLORIDE. [Concomitant]
     Active Substance: SODIUM CHLORIDE
     Indication: PNEUMONIA
  65. TAZOCIN [Concomitant]
     Active Substance: PIPERACILLIN SODIUM\TAZOBACTAM SODIUM
     Indication: URINARY TRACT INFECTION
     Dosage: DOSAGE FORM: SOLUTION
     Route: 042
     Dates: start: 20160308, end: 20160315
  66. VELCADE [Suspect]
     Active Substance: BORTEZOMIB
     Indication: PLASMA CELL MYELOMA
     Dosage: LYOPHILIZED POWDER, D 1, 4, 8, 11, 22, 25, 29 AND 32 ; CYCLICAL
     Route: 058
     Dates: start: 20151201, end: 20160301
  67. VELCADE [Suspect]
     Active Substance: BORTEZOMIB
     Dosage: 1 CYCLICAL
     Route: 058
     Dates: start: 20160101
  68. PREDNISONE. [Suspect]
     Active Substance: PREDNISONE
     Indication: PLASMA CELL MYELOMA
     Dosage: DOSAGE FORM: UNSPECIFIED
     Route: 048
     Dates: start: 20151202, end: 20151204
  69. CO-DYDRAMOL [Concomitant]
     Active Substance: ACETAMINOPHEN\DIHYDROCODEINE
     Indication: HYPERTENSION
  70. FUROSEMIDE. [Concomitant]
     Active Substance: FUROSEMIDE
     Indication: OEDEMA PERIPHERAL
     Route: 048
     Dates: start: 20160202
  71. LACTULOSE. [Concomitant]
     Active Substance: LACTULOSE
     Dosage: 1 AS NECESSARY
     Route: 048
     Dates: start: 20160316
  72. PARACETAMOL [Concomitant]
     Active Substance: ACETAMINOPHEN
     Indication: ARTHRALGIA
     Dosage: 1 AS NECESSARY
     Route: 048
     Dates: start: 20160101
  73. LAXIDO ORANGE [Concomitant]
     Indication: PRODUCT USED FOR UNKNOWN INDICATION
     Dosage: DOSAGE FORM: SACHET
     Route: 048
  74. VELCADE [Suspect]
     Active Substance: BORTEZOMIB
     Route: 058
     Dates: start: 20151204
  75. VELCADE [Suspect]
     Active Substance: BORTEZOMIB
     Dosage: 1 CYCLICAL
     Route: 058
     Dates: start: 20151229
  76. VELCADE [Suspect]
     Active Substance: BORTEZOMIB
     Dosage: LYOPHILIZED POWDER
     Route: 058
     Dates: start: 20151222
  77. PREDNISONE. [Suspect]
     Active Substance: PREDNISONE
     Route: 048
     Dates: start: 20160224, end: 20160226
  78. DALTEPARIN [Concomitant]
     Active Substance: DALTEPARIN
     Dosage: DOSAGE FORM: SOLUTION
     Route: 058
     Dates: start: 20160308, end: 20160315
  79. DOXAZOSIN [Concomitant]
     Active Substance: DOXAZOSIN\DOXAZOSIN MESYLATE
     Indication: HYPERTENSION
     Route: 048
  80. MORPHINE SULPHATE [Concomitant]
     Active Substance: MORPHINE SULFATE
     Dosage: 1 AS NECESSARY
     Route: 048
     Dates: start: 20160309, end: 20160311

REACTIONS (11)
  - Arthralgia [Recovered/Resolved]
  - Acute kidney injury [Recovered/Resolved]
  - Pneumonia [Unknown]
  - Oedema peripheral [Unknown]
  - Urinary tract infection [Recovered/Resolved]
  - Infection [Not Recovered/Not Resolved]
  - Joint swelling [Unknown]
  - Sepsis [Unknown]
  - Eye pruritus [Unknown]
  - Anaemia [Recovered/Resolved]
  - Drug dose omission [Unknown]

NARRATIVE: CASE EVENT DATE: 20151201
